FAERS Safety Report 9773411 (Version 1)
Quarter: 2013Q4

REPORT INFORMATION
  Report Type: Report from Study
  Country: MX (occurrence: MX)
  Receive Date: 20131219
  Receipt Date: 20131219
  Transmission Date: 20140711
  Serious: Yes (Hospitalization, Other)
  Sender: FDA-Public Use
  Company Number: PHHY2013MX149021

PATIENT
  Age: 13 Year
  Sex: Female

DRUGS (2)
  1. TRILEPTAL [Suspect]
     Indication: EPILEPSY
     Dosage: TWO TABLETS DAILY (300MG)
     Route: 048
  2. TRILEPTAL [Suspect]
     Dosage: TRILPETAL 600MG
     Route: 048

REACTIONS (9)
  - Loss of consciousness [Unknown]
  - Impaired reasoning [Unknown]
  - Feeling drunk [Unknown]
  - Dysstasia [Unknown]
  - Vomiting [Unknown]
  - Dizziness [Unknown]
  - Convulsion [Unknown]
  - Rhinitis [Not Recovered/Not Resolved]
  - Immune thrombocytopenic purpura [Not Recovered/Not Resolved]
